FAERS Safety Report 19519443 (Version 1)
Quarter: 2021Q3

REPORT INFORMATION
  Report Type: Spontaneous
  Country: US (occurrence: US)
  Receive Date: 20210710
  Receipt Date: 20210710
  Transmission Date: 20211014
  Serious: Yes (Hospitalization)
  Sender: FDA-Public Use
  Company Number: None

PATIENT
  Sex: Female
  Weight: 130 kg

DRUGS (2)
  1. XELODA [Suspect]
     Active Substance: CAPECITABINE
  2. MITOMYCIN C [Concomitant]
     Active Substance: MITOMYCIN

REACTIONS (4)
  - Haemoglobin decreased [None]
  - Fatigue [None]
  - Dizziness [None]
  - Troponin T increased [None]

NARRATIVE: CASE EVENT DATE: 20210708
